FAERS Safety Report 6711894-9 (Version None)
Quarter: 2010Q2

REPORT INFORMATION
  Report Type: 
  Country: None (occurrence: None)
  Receive Date: 20100505
  Receipt Date: 20100430
  Transmission Date: 20101027
  Serious: Yes (Hospitalization)
  Sender: FDA-Public Use
  Company Number: US-MERCK-1004USA04788

PATIENT
  Age: 74 Year
  Sex: Male

DRUGS (3)
  1. JANUVIA [Suspect]
     Route: 048
  2. METFORMIN [Suspect]
     Route: 065
  3. GLYBURIDE [Suspect]
     Route: 065

REACTIONS (2)
  - BLOOD GLUCOSE INCREASED [None]
  - PNEUMONIA [None]
